FAERS Safety Report 20717664 (Version 1)
Quarter: 2022Q2

REPORT INFORMATION
  Report Type: Spontaneous
  Country: JP (occurrence: JP)
  Receive Date: 20220417
  Receipt Date: 20220417
  Transmission Date: 20220721
  Serious: Yes (Hospitalization, Other)
  Sender: FDA-Public Use
  Company Number: JP-NOVARTISPH-NVSJ2022JP005670

PATIENT
  Age: 49 Year
  Sex: Female

DRUGS (2)
  1. FINGOLIMOD HYDROCHLORIDE [Suspect]
     Active Substance: FINGOLIMOD HYDROCHLORIDE
     Indication: Multiple sclerosis relapse
     Dosage: 0.5 MG, DAILY ADMINISTRATION
     Route: 048
     Dates: start: 2016
  2. FINGOLIMOD HYDROCHLORIDE [Suspect]
     Active Substance: FINGOLIMOD HYDROCHLORIDE
     Dosage: 0.5 MG, ALTERNATE?DAY ADMINISTRATION
     Route: 048
     Dates: end: 2018

REACTIONS (9)
  - Radius fracture [Unknown]
  - Secondary progressive multiple sclerosis [Unknown]
  - Disease progression [Unknown]
  - Gait disturbance [Unknown]
  - Cerebral atrophy [Unknown]
  - Spinal cord disorder [Unknown]
  - Lymphocyte count decreased [Unknown]
  - Fall [Unknown]
  - Prescribed underdose [Unknown]

NARRATIVE: CASE EVENT DATE: 20170101
